FAERS Safety Report 12286822 (Version 2)
Quarter: 2018Q2

REPORT INFORMATION
  Report Type: Spontaneous
  Country: CA (occurrence: CA)
  Receive Date: 20160420
  Receipt Date: 20180628
  Transmission Date: 20180711
  Serious: Yes (Other)
  Sender: FDA-Public Use
  Company Number: CA-ROCHE-1743768

PATIENT
  Age: 60 Year
  Sex: Male

DRUGS (1)
  1. DIAZEPAM. [Suspect]
     Active Substance: DIAZEPAM
     Indication: MAJOR DEPRESSION
     Route: 065

REACTIONS (2)
  - Depression [Unknown]
  - Disease recurrence [Unknown]
